FAERS Safety Report 16249140 (Version 1)
Quarter: 2019Q2

REPORT INFORMATION
  Report Type: Spontaneous
  Country: SE (occurrence: SE)
  Receive Date: 20190429
  Receipt Date: 20190429
  Transmission Date: 20190711
  Serious: Yes (Life-Threatening, Hospitalization, Disabling)
  Sender: FDA-Public Use
  Company Number: SE-ACCORD-124586

PATIENT
  Age: 74 Year
  Sex: Female
  Weight: 45 kg

DRUGS (20)
  1. PRAMIPEXOLE/PRAMIPEXOLE DIHYDROCHLORIDE [Interacting]
     Active Substance: PRAMIPEXOLE DIHYDROCHLORIDE
     Indication: MUSCLE SPASMS
  2. DIMETHICONE. [Interacting]
     Active Substance: DIMETHICONE
     Indication: FLATULENCE
  3. GLYCERYL TRINITRATE [Interacting]
     Active Substance: NITROGLYCERIN
     Indication: VASODILATATION
  4. ATORVASTATIN/ATORVASTATIN CALCIUM [Suspect]
     Active Substance: ATORVASTATIN CALCIUM
     Indication: BLOOD CHOLESTEROL INCREASED
  5. OXASCAND [Interacting]
     Active Substance: OXAZEPAM
     Indication: PRODUCT USED FOR UNKNOWN INDICATION
  6. ALVEDON [Interacting]
     Active Substance: ACETAMINOPHEN
     Indication: PAIN
  7. NATRIUMKLORID [Interacting]
     Active Substance: SODIUM CHLORIDE
     Indication: PRODUCT USED FOR UNKNOWN INDICATION
  8. ACETYLSALICYLIC ACID [Interacting]
     Active Substance: ASPIRIN
     Indication: PAIN
  9. ESOMEPRAZOLE/ESOMEPRAZOLE MAGNESIUM/ESOMEPRAZOLE SODIUM [Interacting]
     Active Substance: ESOMEPRAZOLE
     Indication: PRODUCT USED FOR UNKNOWN INDICATION
  10. ACETYLCYSTEINE. [Interacting]
     Active Substance: ACETYLCYSTEINE
     Indication: INCREASED VISCOSITY OF UPPER RESPIRATORY SECRETION
  11. HEMINEVRIN [Interacting]
     Active Substance: CLOMETHIAZOLE
     Indication: ANXIETY
     Dosage: 300 MG, 50 MG
  12. LEVAXIN [Interacting]
     Active Substance: LEVOTHYROXINE SODIUM
     Indication: HYPOTHYROIDISM
     Dosage: 100 AND 25 MICROGRAM
  13. NIFEREX [FERROGLYCINE SULFATE COMPLEX] [Interacting]
     Active Substance: FERROGLYCINE SULFATE
     Indication: MINERAL SUPPLEMENTATION
  14. TROMBYL [Interacting]
     Active Substance: ASPIRIN
     Indication: ANTICOAGULANT THERAPY
  15. HIRUDOID [Interacting]
     Active Substance: GLYCOSAMINOGLYCANS
     Indication: VARICOSE VEIN
  16. ISOSORBIDE. [Interacting]
     Active Substance: ISOSORBIDE
     Indication: VASODILATATION
  17. HALDOL [Interacting]
     Active Substance: HALOPERIDOL
     Indication: PRODUCT USED FOR UNKNOWN INDICATION
  18. DIAZEMULS NOVUM [Interacting]
     Active Substance: DIAZEPAM
     Indication: ANXIETY
  19. METOPROLOL. [Interacting]
     Active Substance: METOPROLOL
     Indication: HYPERTENSION
  20. TRAMADOL. [Interacting]
     Active Substance: TRAMADOL
     Indication: PAIN

REACTIONS (5)
  - Drug interaction [Unknown]
  - Muscle atrophy [Unknown]
  - Toxicity to various agents [Unknown]
  - Sedation [Unknown]
  - Chronic fatigue syndrome [Unknown]

NARRATIVE: CASE EVENT DATE: 2013
